FAERS Safety Report 8471200-9 (Version None)
Quarter: 2012Q2

REPORT INFORMATION
  Report Type: 
  Country: None (occurrence: None)
  Receive Date: 20120627
  Receipt Date: 20120611
  Transmission Date: 20120825
  Serious: Yes (Hospitalization)
  Sender: FDA-Public Use
  Company Number: FR-PFIZER INC-2012152165

PATIENT
  Age: 48 Year
  Sex: Female

DRUGS (10)
  1. DESLORATADINE [Concomitant]
     Indication: PRODUCT USED FOR UNKNOWN INDICATION
  2. SINGULAIR [Suspect]
     Indication: ASTHMA
     Dosage: 10 MG, 1X/DAY
     Dates: start: 20120326
  3. ALBUTEROL SULATE [Suspect]
     Indication: ASTHMA
     Dosage: 100 UG, 3X/DAY
     Route: 055
     Dates: start: 20080101, end: 20120401
  4. ACETAMINOPHEN AND TRAMADOL HCL [Suspect]
     Indication: TOOTHACHE
     Dosage: 325 MG/37.5 MG, 3X/DAY
     Route: 048
     Dates: start: 20120326, end: 20120401
  5. BUDESONIDE/FORMOTEROL FUMARATE [Suspect]
     Indication: ASTHMA
     Dosage: UNK
     Route: 055
     Dates: start: 20090101
  6. HUMALOG [Concomitant]
     Indication: PRODUCT USED FOR UNKNOWN INDICATION
  7. IBUPROFEN [Suspect]
     Indication: TOOTHACHE
     Dosage: 400 MG, 3X/DAY
     Route: 048
     Dates: start: 20120326, end: 20120401
  8. LEVOTHYROXINE SODIUM [Concomitant]
     Indication: PRODUCT USED FOR UNKNOWN INDICATION
  9. PRAZEPAM [Concomitant]
     Indication: PRODUCT USED FOR UNKNOWN INDICATION
  10. GUETHURAL [Concomitant]
     Indication: PRODUCT USED FOR UNKNOWN INDICATION

REACTIONS (1)
  - MENINGORRHAGIA [None]
